FAERS Safety Report 15237629 (Version 2)
Quarter: 2018Q3

REPORT INFORMATION
  Report Type: Report from Study
  Country: IL (occurrence: IL)
  Receive Date: 20180803
  Receipt Date: 20180820
  Transmission Date: 20181010
  Serious: Yes (Hospitalization)
  Sender: FDA-Public Use
  Company Number: IL-ACTELION-A-CH2018-175571

PATIENT
  Age: 46 Year
  Sex: Female

DRUGS (9)
  1. SLOW K [Concomitant]
     Active Substance: POTASSIUM CHLORIDE
  2. AVASTIN [Concomitant]
     Active Substance: BEVACIZUMAB
     Dosage: UNK
     Route: 042
  3. REVATIO [Concomitant]
     Active Substance: SILDENAFIL CITRATE
  4. DISOTHIAZIDE [Concomitant]
     Active Substance: HYDROCHLOROTHIAZIDE
  5. OPSUMIT [Suspect]
     Active Substance: MACITENTAN
     Indication: PULMONARY ARTERIAL HYPERTENSION
     Dosage: 10 MG, QD
     Route: 048
     Dates: start: 20160112
  6. FUSID [Concomitant]
     Active Substance: FUROSEMIDE
  7. UPTRAVI [Suspect]
     Active Substance: SELEXIPAG
     Indication: PULMONARY ARTERIAL HYPERTENSION
     Dosage: 1000 ?G, BID
     Route: 048
     Dates: start: 20170523
  8. NEXIUM [Concomitant]
     Active Substance: ESOMEPRAZOLE MAGNESIUM
  9. CARDILOC [Concomitant]
     Active Substance: BISOPROLOL FUMARATE

REACTIONS (6)
  - Pleural effusion [Recovered/Resolved]
  - Biliary tract infection [Unknown]
  - Pneumonia [Recovered/Resolved]
  - Chest pain [Recovered/Resolved]
  - Pyrexia [Recovered/Resolved]
  - Dyspnoea [Recovered/Resolved]

NARRATIVE: CASE EVENT DATE: 20180712
